FAERS Safety Report 9923627 (Version 1)
Quarter: 2014Q1

REPORT INFORMATION
  Report Type: Spontaneous
  Country: US (occurrence: US)
  Receive Date: 20140225
  Receipt Date: 20140225
  Transmission Date: 20141002
  Serious: Yes (Life-Threatening)
  Sender: FDA-Public Use
  Company Number: US-B.I. PHARMACEUTICALS,INC./RIDGEFIELD-2014-BI-08110BP

PATIENT
  Age: 91 Year
  Sex: Female

DRUGS (8)
  1. PRADAXA [Suspect]
     Indication: PRODUCT USED FOR UNKNOWN INDICATION
     Dosage: 75 MG
     Route: 048
     Dates: start: 201306
  2. PLAVIX [Concomitant]
     Route: 065
  3. DOCUSATE [Concomitant]
     Route: 065
  4. METOPROLOL [Concomitant]
     Route: 065
  5. MIRTAZIPINE [Concomitant]
     Route: 065
  6. PRILOSEC [Concomitant]
     Route: 065
  7. TRAMADOL [Concomitant]
     Route: 065
  8. MULTIVITAMIN [Concomitant]
     Route: 065

REACTIONS (2)
  - Cerebrovascular accident [Unknown]
  - Incorrect drug administration rate [Unknown]
